FAERS Safety Report 7902381-0 (Version None)
Quarter: 2011Q4

REPORT INFORMATION
  Report Type: 
  Country: None (occurrence: None)
  Receive Date: 20111108
  Receipt Date: 20101129
  Transmission Date: 20120403
  Serious: No
  Sender: FDA-Public Use
  Company Number: US-ENDO PHARMACEUTICALS INC.-PRED20110086

PATIENT
  Sex: Female

DRUGS (6)
  1. ACYCLOVIR [Concomitant]
     Dosage: UNKNOWN
  2. PREDNISONE [Suspect]
     Indication: PRODUCT USED FOR UNKNOWN INDICATION
     Dosage: 20 MG DAILY, ORAL
     Route: 048
  3. ANTI-THYMOCYTE GLOBULIN NOS [Concomitant]
     Indication: PRODUCT USED FOR UNKNOWN INDICATION
     Dosage: UNKNOWN
  4. BACTRIM [Concomitant]
     Dosage: UNKNOWN
  5. FLUCONAZOLE [Concomitant]
     Indication: PRODUCT USED FOR UNKNOWN INDICATION
     Dosage: UNKNOWN
  6. ECULIZUMAB [Concomitant]
     Dosage: UNKNOWN
     Dates: end: 20100930

REACTIONS (5)
  - PLATELET COUNT DECREASED [None]
  - HYPOTENSION [None]
  - MALAISE [None]
  - HAEMOGLOBIN DECREASED [None]
  - DIABETES MELLITUS [None]
